FAERS Safety Report 26200741 (Version 1)
Quarter: 2025Q4

REPORT INFORMATION
  Report Type: Spontaneous
  Country: US (occurrence: US)
  Receive Date: 20251226
  Receipt Date: 20251226
  Transmission Date: 20260118
  Serious: No
  Sender: TEVA
  Company Number: US-TEVA-VS-3404424

PATIENT
  Age: 64 Year
  Sex: Female

DRUGS (2)
  1. PREDNISONE [Suspect]
     Active Substance: PREDNISONE
     Indication: Product used for unknown indication
     Route: 065
  2. LUPKYNIS [Suspect]
     Active Substance: VOCLOSPORIN
     Indication: Lupus nephritis
     Dosage: ONGOING
     Route: 048
     Dates: start: 20241211

REACTIONS (5)
  - Hypertension [Unknown]
  - Blood calcium decreased [Unknown]
  - Weight increased [Unknown]
  - Proteinuria [Unknown]
  - Arthralgia [Unknown]
